FAERS Safety Report 21747243 (Version 1)
Quarter: 2022Q4

REPORT INFORMATION
  Report Type: Report from Study
  Country: PR (occurrence: PR)
  Receive Date: 20221219
  Receipt Date: 20221219
  Transmission Date: 20230113
  Serious: No
  Sender: FDA-Public Use
  Company Number: PR-ABBVIE-4203456

PATIENT
  Sex: Female
  Weight: 80.739 kg

DRUGS (10)
  1. HUMIRA [Suspect]
     Active Substance: ADALIMUMAB
     Indication: Rheumatoid arthritis
     Dosage: STRENGTH: 40 MILLIGRAM
     Route: 058
     Dates: start: 20221111
  2. XIGDUO XR [Concomitant]
     Active Substance: DAPAGLIFLOZIN PROPANEDIOL\METFORMIN HYDROCHLORIDE
     Indication: Diabetes mellitus
     Dosage: 10/1000MG
     Route: 048
     Dates: start: 2021
  3. BACLOFEN [Concomitant]
     Active Substance: BACLOFEN
     Indication: Prophylaxis
     Dosage: STRENGTH: 10 MILLIGRAM?2 TO 3 YEARS AGO
     Route: 048
     Dates: start: 2019
  4. BUPROPION [Concomitant]
     Active Substance: BUPROPION
     Indication: Anxiety
     Dosage: STRENGTH: 75 MILLIGRAM?START DATE TEXT: 3 TO 4 YEARS AGO
     Route: 048
     Dates: start: 2018
  5. LIPITOR [Concomitant]
     Active Substance: ATORVASTATIN CALCIUM
     Indication: Blood cholesterol
     Dosage: STRENGTH: 10 MILLIGRAM
     Route: 048
  6. TOZINAMERAN [Concomitant]
     Active Substance: TOZINAMERAN
     Indication: COVID-19 immunisation
     Dosage: 2ND DOSE?1 IN ONCE
     Route: 030
     Dates: start: 20210415, end: 20210415
  7. TOZINAMERAN [Concomitant]
     Active Substance: TOZINAMERAN
     Indication: COVID-19 immunisation
     Dosage: 1ST DOSE?1 IN ONCE
     Route: 030
     Dates: start: 20210325, end: 20210325
  8. NEURONTIN [Concomitant]
     Active Substance: GABAPENTIN
     Indication: Pain
     Dosage: STRENGTH: 300 MILLIGRAM?START DATE TEXT: OVER 3 YEARS AGO
     Route: 048
  9. BUSPIRONE [Concomitant]
     Active Substance: BUSPIRONE HYDROCHLORIDE
     Indication: Insomnia
     Dosage: STRENGTH: 5 MILLIGRAM?START DATE TEXT: 3 TO 4 YEARS AGO
     Route: 048
     Dates: start: 2018
  10. LOSARTAN [Concomitant]
     Active Substance: LOSARTAN
     Indication: Hypertension
     Dosage: STRENGTH: 100 MILLIGRAM
     Route: 048
     Dates: start: 2016

REACTIONS (2)
  - Arthralgia [Not Recovered/Not Resolved]
  - Inflammation [Not Recovered/Not Resolved]

NARRATIVE: CASE EVENT DATE: 20221001
